FAERS Safety Report 19507068 (Version 1)
Quarter: 2021Q3

REPORT INFORMATION
  Report Type: Spontaneous
  Country: US (occurrence: US)
  Receive Date: 20210708
  Receipt Date: 20210708
  Transmission Date: 20211014
  Serious: No
  Sender: FDA-Public Use
  Company Number: None

PATIENT
  Age: 70 Year
  Sex: Male

DRUGS (1)
  1. FENTANYL (FENTANYL CITRATE 50MCG/ML INJ) [Suspect]
     Active Substance: FENTANYL CITRATE
     Dosage: ?          OTHER STRENGTH:50MCG/ML;?
     Dates: start: 20210422

REACTIONS (1)
  - Mental status changes [None]

NARRATIVE: CASE EVENT DATE: 20210422
